FAERS Safety Report 23889217 (Version 1)
Quarter: 2024Q2

REPORT INFORMATION
  Report Type: Spontaneous
  Country: BR (occurrence: BR)
  Receive Date: 20240523
  Receipt Date: 20240523
  Transmission Date: 20240716
  Serious: Yes (Hospitalization)
  Sender: FDA-Public Use
  Company Number: BR-002147023-PHHY2019BR112737

PATIENT
  Sex: Female
  Weight: 56 kg

DRUGS (1)
  1. GLYCOPYRROLATE [Suspect]
     Active Substance: GLYCOPYRROLATE
     Indication: Emphysema
     Dosage: 0.05 MG, EVERY 12 HOURS
     Route: 055
     Dates: start: 201812

REACTIONS (3)
  - Emphysema [Not Recovered/Not Resolved]
  - Visual impairment [Not Recovered/Not Resolved]
  - Product use in unapproved indication [Unknown]
